FAERS Safety Report 24302017 (Version 1)
Quarter: 2024Q3

REPORT INFORMATION
  Report Type: Spontaneous
  Country: US (occurrence: None)
  Receive Date: 20240827
  Receipt Date: 20240827
  Transmission Date: 20241017
  Serious: Yes (Death)
  Sender: Public
  Company Number: None

PATIENT
  Age: 67 Year
  Sex: Male
  Weight: 166.5 kg

DRUGS (7)
  1. MOUNJARO [Suspect]
     Active Substance: TIRZEPATIDE
     Indication: Diabetes mellitus
     Dosage: OTHER FREQUENCY : WEEKLY;?
     Dates: start: 20240701, end: 20240708
  2. MOUNJARO [Suspect]
     Active Substance: TIRZEPATIDE
     Indication: Weight decreased
  3. METFORMIN [Concomitant]
     Active Substance: METFORMIN HYDROCHLORIDE
  4. ATORVASTATIN [Concomitant]
     Active Substance: ATORVASTATIN
  5. GEMFIBROZIL [Concomitant]
     Active Substance: GEMFIBROZIL
  6. lotsatan [Concomitant]
  7. Senior multivitamin [Concomitant]

REACTIONS (6)
  - Therapy interrupted [None]
  - Constipation [None]
  - Nausea [None]
  - Pulmonary embolism [None]
  - Intentional dose omission [None]
  - Foot operation [None]

NARRATIVE: CASE EVENT DATE: 20240708
